FAERS Safety Report 4292495-1 (Version None)
Quarter: 2004Q1

REPORT INFORMATION
  Report Type: 
  Country: None (occurrence: None)
  Receive Date: 20040126
  Receipt Date: 20031007
  Transmission Date: 20041129
  Serious: No
  Sender: FDA-Public Use
  Company Number: USA031049252

PATIENT
  Age: 56 Year
  Sex: Male
  Weight: 93 kg

DRUGS (5)
  1. FORTEO [Suspect]
     Indication: OSTEOPOROSIS
     Dates: start: 20030401
  2. DARVOCET-N 100 [Concomitant]
  3. NEURONTIN [Concomitant]
  4. MOTRIN [Concomitant]
  5. LEXAPRO [Concomitant]

REACTIONS (1)
  - RECURRING SKIN BOILS [None]
